FAERS Safety Report 15753800 (Version 2)
Quarter: 2019Q1

REPORT INFORMATION
  Report Type: Spontaneous
  Country: US (occurrence: US)
  Receive Date: 20181222
  Receipt Date: 20190222
  Transmission Date: 20190417
  Serious: Yes (Other)
  Sender: FDA-Public Use
  Company Number: US-LEXICON PHARMACEUTICALS, INC-18-1606-01607

PATIENT
  Sex: Male

DRUGS (1)
  1. TELOTRISTAT ETHYL [Suspect]
     Active Substance: TELOTRISTAT ETHYL
     Indication: CARCINOID SYNDROME
     Route: 048
     Dates: start: 20181103

REACTIONS (6)
  - Somnolence [Unknown]
  - Fatigue [Unknown]
  - Disease progression [Unknown]
  - Radiotherapy [Unknown]
  - Weight decreased [Unknown]
  - Hunger [Unknown]

NARRATIVE: CASE EVENT DATE: 2018
